FAERS Safety Report 10697636 (Version 1)
Quarter: 2015Q1

REPORT INFORMATION
  Report Type: Spontaneous
  Country: FR (occurrence: FR)
  Receive Date: 20150108
  Receipt Date: 20150108
  Transmission Date: 20150721
  Serious: Yes (Hospitalization)
  Sender: FDA-Public Use
  Company Number: FR-SA-2015SA001740

PATIENT
  Age: 80 Year
  Sex: Male

DRUGS (9)
  1. CORDARONE [Suspect]
     Active Substance: AMIODARONE HYDROCHLORIDE
     Route: 048
  2. RAMIPRIL. [Suspect]
     Active Substance: RAMIPRIL
     Route: 048
     Dates: end: 20141010
  3. KARDEGIC [Suspect]
     Active Substance: ASPIRIN LYSINE
     Route: 048
  4. ENANTONE LP [Suspect]
     Active Substance: LEUPROLIDE ACETATE
     Dosage: FREQ: TWICE A YEAR
     Route: 030
     Dates: end: 201407
  5. CORVASAL [Suspect]
     Active Substance: LINSIDOMINE
     Route: 048
  6. ZOLPIDEM [Suspect]
     Active Substance: ZOLPIDEM\ZOLPIDEM TARTRATE
     Route: 048
  7. LERCANIDIPINE [Suspect]
     Active Substance: LERCANIDIPINE
     Route: 048
     Dates: end: 201410
  8. LASILIX [Suspect]
     Active Substance: FUROSEMIDE
     Route: 048
  9. LEVOTHYROX [Suspect]
     Active Substance: LEVOTHYROXINE
     Route: 048

REACTIONS (4)
  - Anaemia [Not Recovered/Not Resolved]
  - Disease progression [Not Recovered/Not Resolved]
  - Thrombocytopenia [Not Recovered/Not Resolved]
  - Pancytopenia [Not Recovered/Not Resolved]

NARRATIVE: CASE EVENT DATE: 201312
